FAERS Safety Report 5257177-8 (Version None)
Quarter: 2007Q1

REPORT INFORMATION
  Report Type: 
  Country: None (occurrence: None)
  Receive Date: 20070302
  Receipt Date: 20060914
  Transmission Date: 20070707
  Serious: Yes (Hospitalization)
  Sender: FDA-Public Use
  Company Number: 2006SP001518

PATIENT
  Age: 74 Year
  Sex: Male

DRUGS (3)
  1. CLARITYNE (LORATADINE)  (LORATADINE) [Suspect]
     Indication: PREMEDICATION
     Dosage: 10 MG; QD; PO
     Route: 048
     Dates: start: 20060806, end: 20060808
  2. ATARAX [Suspect]
     Indication: PREMEDICATION
     Dosage: 100 MG; QD; PO
     Route: 048
     Dates: start: 20060806, end: 20060808
  3. SPIRIVA [Concomitant]

REACTIONS (2)
  - ACUTE GENERALISED EXANTHEMATOUS PUSTULOSIS [None]
  - DERMATITIS EXFOLIATIVE [None]
